FAERS Safety Report 21401661 (Version 2)
Quarter: 2022Q4

REPORT INFORMATION
  Report Type: Spontaneous
  Country: DE (occurrence: DE)
  Receive Date: 20221003
  Receipt Date: 20221006
  Transmission Date: 20230112
  Serious: Yes (Life-Threatening, Hospitalization, Other)
  Sender: FDA-Public Use
  Company Number: DE-ADRED-08184-01

PATIENT
  Age: 84 Year
  Sex: Female
  Weight: 60 kg

DRUGS (6)
  1. APIXABAN [Suspect]
     Active Substance: APIXABAN
     Indication: Product used for unknown indication
     Dosage: 5 MG, 1-0-1-0, TABLETTEN
     Route: 048
  2. OXAZEPAM [Concomitant]
     Active Substance: OXAZEPAM
     Indication: Product used for unknown indication
     Dosage: 10 MG, 0-0-1-0, TABLETTEN
     Route: 048
  3. MELPERONE [Concomitant]
     Active Substance: MELPERONE
     Indication: Product used for unknown indication
     Dosage: 25 MG, 1-0-0-1, TABLETTEN
     Route: 048
  4. TORSEMIDE [Concomitant]
     Active Substance: TORSEMIDE
     Indication: Product used for unknown indication
     Dosage: 5 MG, 1-0-0-0, TABLETTEN
     Route: 048
  5. CARVEDILOL [Concomitant]
     Active Substance: CARVEDILOL
     Indication: Product used for unknown indication
     Dosage: 12.5 MG, 1-0-1-0, TABLETTEN
     Route: 048
  6. SIMVASTATIN [Concomitant]
     Active Substance: SIMVASTATIN
     Dosage: 40 MG, 0-0-1-0, TABLETTEN
     Route: 048

REACTIONS (6)
  - Dyspnoea [Unknown]
  - Upper gastrointestinal haemorrhage [Unknown]
  - Haematemesis [Unknown]
  - Depressed level of consciousness [Unknown]
  - Vomiting [Unknown]
  - Pneumonia aspiration [Unknown]
